FAERS Safety Report 8439299-3 (Version None)
Quarter: 2012Q2

REPORT INFORMATION
  Report Type: 
  Country: None (occurrence: None)
  Receive Date: 20120615
  Receipt Date: 20120612
  Transmission Date: 20120825
  Serious: Yes (Death, Other)
  Sender: FDA-Public Use
  Company Number: PHEH2012US007225

PATIENT
  Sex: Male
  Weight: 87 kg

DRUGS (7)
  1. ZOMETA [Suspect]
     Dosage: 3 MG,
  2. DEXAMETHASONE [Concomitant]
     Dosage: 8 MG, WEEKLY
  3. REVLIMID [Concomitant]
     Dosage: 10 MG, DAILY
     Dates: start: 20100908
  4. DEXAMETHASONE [Concomitant]
     Dosage: 10 DF EVERY WEEK
     Route: 048
  5. LIPITOR [Concomitant]
     Dosage: 25 MG, QD
     Route: 048
  6. SODIUM CHLORIDE [Concomitant]
     Dosage: 0.9 %, 250 ML,
  7. ASPIRIN [Concomitant]
     Dosage: 81 MG, QD2SDO
     Route: 048

REACTIONS (11)
  - PROTEINURIA [None]
  - BLINDNESS [None]
  - FATIGUE [None]
  - SKIN DISORDER [None]
  - ORAL CANDIDIASIS [None]
  - RENAL FAILURE [None]
  - PANCYTOPENIA [None]
  - PAIN [None]
  - RASH [None]
  - MULTIPLE MYELOMA [None]
  - IRITIS [None]
